FAERS Safety Report 10240246 (Version 1)
Quarter: 2014Q2

REPORT INFORMATION
  Report Type: Report from Study
  Country: FR (occurrence: FR)
  Receive Date: 20140617
  Receipt Date: 20140617
  Transmission Date: 20141212
  Serious: Yes (Other)
  Sender: FDA-Public Use
  Company Number: PHHY2014FR072167

PATIENT
  Age: 39 Year
  Sex: Female

DRUGS (6)
  1. CICLOSPORIN [Suspect]
     Dosage: UNK
     Dates: start: 200807
  2. ENDOXAN [Suspect]
     Indication: ACUTE MYELOID LEUKAEMIA
     Dosage: 6 G, PER DAY
     Route: 042
     Dates: start: 20080710
  3. BUSILVEX [Suspect]
     Indication: ACUTE MYELOID LEUKAEMIA
     Dosage: 240 MG, QD
     Route: 042
     Dates: start: 20080718, end: 20080726
  4. CANCIDAS [Suspect]
     Dosage: UNK
     Route: 042
  5. ANTIBIOTICS [Suspect]
     Dosage: UNK
     Dates: start: 200807
  6. METHOTREXATE [Suspect]
     Indication: ACUTE MYELOID LEUKAEMIA
     Route: 048

REACTIONS (3)
  - Hepatocellular injury [Recovered/Resolved]
  - Bone marrow failure [Recovered/Resolved]
  - Graft versus host disease [Unknown]
